FAERS Safety Report 13587842 (Version 1)
Quarter: 2017Q2

REPORT INFORMATION
  Report Type: Spontaneous
  Country: US (occurrence: US)
  Receive Date: 20170527
  Receipt Date: 20170527
  Transmission Date: 20170830
  Serious: Yes (Hospitalization)
  Sender: FDA-Public Use
  Company Number: US-ASTRAZENECA-2017SE56266

PATIENT
  Sex: Male
  Weight: 131.5 kg

DRUGS (1)
  1. ZURAMPIC [Suspect]
     Active Substance: LESINURAD
     Indication: BLOOD URIC ACID ABNORMAL
     Route: 048
     Dates: start: 20170502, end: 20170516

REACTIONS (1)
  - Renal failure [Unknown]
